FAERS Safety Report 6724319-4 (Version None)
Quarter: 2010Q2

REPORT INFORMATION
  Report Type: 
  Country: None (occurrence: None)
  Receive Date: 20100513
  Receipt Date: 20100510
  Transmission Date: 20101027
  Serious: Yes (Death)
  Sender: FDA-Public Use
  Company Number: CHPA2010US08230

PATIENT
  Sex: Female

DRUGS (1)
  1. MAALOX UNKNOWN (NCH) [Suspect]
     Indication: DYSPEPSIA
     Dosage: UNK, UNK
     Route: 048

REACTIONS (1)
  - DEATH [None]
